FAERS Safety Report 19004597 (Version 1)
Quarter: 2021Q1

REPORT INFORMATION
  Report Type: Spontaneous
  Country: US (occurrence: US)
  Receive Date: 20210313
  Receipt Date: 20210313
  Transmission Date: 20210420
  Serious: No
  Sender: FDA-Public Use
  Company Number: US-VISTAPHARM, INC.-VER202005-001082

PATIENT
  Sex: Female
  Weight: 70.76 kg

DRUGS (1)
  1. NYSTATIN. [Suspect]
     Active Substance: NYSTATIN
     Indication: ORAL CANDIDIASIS
     Dosage: SWISH AND SWALLOW 5 ML BY MOUTH (2 DOSES)
     Route: 048
     Dates: start: 20200525, end: 20200525

REACTIONS (4)
  - Oral discomfort [Recovered/Resolved]
  - Taste disorder [Recovered/Resolved]
  - Dysarthria [Recovered/Resolved]
  - Dysgeusia [Recovered/Resolved]
